FAERS Safety Report 7306582-4 (Version None)
Quarter: 2011Q1

REPORT INFORMATION
  Report Type: 
  Country: None (occurrence: None)
  Receive Date: 20110222
  Receipt Date: 20110214
  Transmission Date: 20110831
  Serious: Yes (Other)
  Sender: FDA-Public Use
  Company Number: US-ROCHE-736897

PATIENT
  Sex: Male
  Weight: 68 kg

DRUGS (1)
  1. ACCUTANE [Suspect]
     Indication: ACNE
     Route: 065
     Dates: start: 19820601, end: 19830601

REACTIONS (8)
  - ARTHRALGIA [None]
  - CROHN'S DISEASE [None]
  - ANAEMIA [None]
  - GASTROINTESTINAL INJURY [None]
  - COLON CANCER [None]
  - INFLAMMATORY BOWEL DISEASE [None]
  - HAEMORRHOIDS [None]
  - COLITIS ULCERATIVE [None]
